FAERS Safety Report 22941083 (Version 6)
Quarter: 2023Q4

REPORT INFORMATION
  Report Type: Spontaneous
  Country: US (occurrence: US)
  Receive Date: 20230913
  Receipt Date: 20231121
  Transmission Date: 20240109
  Serious: Yes (Other)
  Sender: FDA-Public Use
  Company Number: US-BRISTOL-MYERS SQUIBB COMPANY-2022-057301

PATIENT
  Age: 69 Year
  Sex: Female
  Weight: 88.4 kg

DRUGS (34)
  1. REVLIMID [Suspect]
     Active Substance: LENALIDOMIDE
     Indication: Plasma cell myeloma
     Dates: start: 20170424
  2. REVLIMID [Suspect]
     Active Substance: LENALIDOMIDE
     Dosage: TAKE 1 CAPSULE BY MOUTH DAILY ON DAYS 1-21 FOLLOWED BY 7 DAYS OFF
     Route: 048
     Dates: start: 20200630
  3. REVLIMID [Suspect]
     Active Substance: LENALIDOMIDE
     Dates: start: 20200708
  4. REVLIMID [Suspect]
     Active Substance: LENALIDOMIDE
     Dosage: TAKE 1 CAPSULE BY MOUTH EVERY DAY FOR 21 DAYS THEN 7 DAYS OFF
     Route: 048
     Dates: start: 20230601, end: 202310
  5. REVLIMID [Suspect]
     Active Substance: LENALIDOMIDE
     Dosage: DAILY D1-21 DAYS/7 DAYS OFF
     Route: 048
     Dates: start: 20230824, end: 20230920
  6. REVLIMID [Suspect]
     Active Substance: LENALIDOMIDE
     Route: 048
  7. ACYCLOVIR [Concomitant]
     Active Substance: ACYCLOVIR
     Indication: Prophylaxis
     Route: 048
  8. ATOVAQUONE [Concomitant]
     Active Substance: ATOVAQUONE
     Indication: Prophylaxis
     Dosage: 1500MG=10ML
     Route: 048
  9. CALCIUM CARBONATE [Concomitant]
     Active Substance: CALCIUM CARBONATE
     Indication: Product used for unknown indication
     Dosage: 1200MG= 2TAB
     Route: 048
  10. DEXAMETHASONE [Concomitant]
     Active Substance: DEXAMETHASONE
     Indication: Plasma cell myeloma
     Dosage: 12MG=3TAB
     Route: 048
     Dates: start: 20231019, end: 20231021
  11. DEXAMETHASONE [Concomitant]
     Active Substance: DEXAMETHASONE
  12. DEXAMETHASONE [Concomitant]
     Active Substance: DEXAMETHASONE
  13. DEXAMETHASONE [Concomitant]
     Active Substance: DEXAMETHASONE
  14. DEXAMETHASONE [Concomitant]
     Active Substance: DEXAMETHASONE
     Dates: start: 20170424
  15. DEXAMETHASONE [Concomitant]
     Active Substance: DEXAMETHASONE
     Dates: start: 20200708
  16. GABAPENTIN [Concomitant]
     Active Substance: GABAPENTIN
     Indication: Neuropathy peripheral
     Route: 048
  17. LIDOCAINE [Concomitant]
     Active Substance: LIDOCAINE
     Indication: Product used for unknown indication
     Route: 061
  18. LISINOPRIL [Concomitant]
     Active Substance: LISINOPRIL
     Indication: Product used for unknown indication
     Route: 048
  19. LOVASTATIN [Concomitant]
     Active Substance: LOVASTATIN
     Indication: Product used for unknown indication
     Route: 048
  20. MONTELUKAST [Concomitant]
     Active Substance: MONTELUKAST SODIUM
     Indication: Product used for unknown indication
     Route: 048
  21. VITAMINS NOS [Concomitant]
     Active Substance: VITAMINS
     Indication: Product used for unknown indication
     Route: 048
  22. ALUMINUM HYDROXIDE\MAGNESIUM CARBONATE [Concomitant]
     Active Substance: ALUMINUM HYDROXIDE\MAGNESIUM CARBONATE
     Indication: Prophylaxis
     Route: 048
  23. XARELTO [Concomitant]
     Active Substance: RIVAROXABAN
     Indication: Thrombosis prophylaxis
     Route: 048
  24. DARATUMUMAB [Concomitant]
     Active Substance: DARATUMUMAB
     Indication: Plasma cell myeloma
  25. DARATUMUMAB [Concomitant]
     Active Substance: DARATUMUMAB
     Dates: start: 20200708
  26. VITAMIN B COMPLEX [Concomitant]
     Active Substance: CYANOCOBALAMIN\DEXPANTHENOL\NIACINAMIDE\PYRIDOXINE HYDROCHLORIDE\RIBOFLAVIN 5^-PHOSPHATE SODIUM\THIA
     Indication: Neuropathy peripheral
  27. ZOLEDRONIC ACID [Concomitant]
     Active Substance: ZOLEDRONIC ACID
     Indication: Prophylaxis
     Dates: end: 20230921
  28. ZOLEDRONIC ACID [Concomitant]
     Active Substance: ZOLEDRONIC ACID
     Dosage: FOR TOTAL 6 DOSES.
     Dates: start: 20170424, end: 20170911
  29. ZOLEDRONIC ACID [Concomitant]
     Active Substance: ZOLEDRONIC ACID
     Dates: start: 20180321
  30. EVUSHELD [Concomitant]
     Active Substance: CILGAVIMAB\TIXAGEVIMAB
     Indication: Prophylaxis
     Dates: start: 202211
  31. EVUSHELD [Concomitant]
     Active Substance: CILGAVIMAB\TIXAGEVIMAB
     Dosage: 150/150
     Dates: end: 202203
  32. BORTEZOMIB [Concomitant]
     Active Substance: BORTEZOMIB
     Indication: Plasma cell myeloma
     Dates: start: 20180221, end: 20180418
  33. BORTEZOMIB [Concomitant]
     Active Substance: BORTEZOMIB
     Dates: start: 20170424
  34. INJECTAFER [Concomitant]
     Active Substance: FERRIC CARBOXYMALTOSE
     Indication: Plasma cell myeloma
     Dosage: FOR 2 DOSES
     Route: 042
     Dates: start: 20180328, end: 20180404

REACTIONS (13)
  - Face oedema [Recovered/Resolved]
  - Paronychia [Recovered/Resolved]
  - Swelling [Recovered/Resolved]
  - Malaise [Recovering/Resolving]
  - Illness [Recovered/Resolved]
  - Nasopharyngitis [Recovered/Resolved]
  - Upper respiratory tract infection [Recovering/Resolving]
  - Off label use [Unknown]
  - Hypogammaglobulinaemia [Unknown]
  - Stevens-Johnson syndrome [Unknown]
  - Pruritus [Unknown]
  - Ear swelling [Unknown]
  - Erythema [Unknown]

NARRATIVE: CASE EVENT DATE: 20170515
